FAERS Safety Report 7226278-7 (Version None)
Quarter: 2011Q1

REPORT INFORMATION
  Report Type: 
  Country: None (occurrence: None)
  Receive Date: 20110114
  Receipt Date: 20110105
  Transmission Date: 20110831
  Serious: Yes (Other)
  Sender: FDA-Public Use
  Company Number: PHHY2010CL76540

PATIENT
  Age: 76 Year
  Sex: Female

DRUGS (3)
  1. CHEMOTHERAPEUTICS NOS [Concomitant]
  2. RADIO-THERAPY [Concomitant]
     Dosage: UNK
     Dates: start: 20101101
  3. TAREG D [Suspect]
     Indication: HYPERTENSION
     Dosage: 80 MG VALS AND 12.5 MG HYDR
     Route: 048

REACTIONS (2)
  - ALOPECIA [None]
  - BONE NEOPLASM MALIGNANT [None]
